FAERS Safety Report 7957751-1 (Version None)
Quarter: 2011Q4

REPORT INFORMATION
  Report Type: 
  Country: None (occurrence: None)
  Receive Date: 20111205
  Receipt Date: 20111130
  Transmission Date: 20120403
  Serious: Yes (Death)
  Sender: FDA-Public Use
  Company Number: PHHY2011PL94060

PATIENT
  Sex: Female

DRUGS (1)
  1. LETROZOLE [Suspect]
     Dosage: 2.5 MG,
     Route: 048
     Dates: start: 20061012

REACTIONS (2)
  - NEOPLASM MALIGNANT [None]
  - NEOPLASM PROGRESSION [None]
